FAERS Safety Report 4760299-9 (Version None)
Quarter: 2005Q3

REPORT INFORMATION
  Report Type: 
  Country: None (occurrence: None)
  Receive Date: 20050902
  Receipt Date: 20050715
  Transmission Date: 20060218
  Serious: Yes (Hospitalization)
  Sender: FDA-Public Use
  Company Number: JP-ROCHE-411616

PATIENT
  Age: 61 Year
  Sex: Female

DRUGS (11)
  1. XELODA [Suspect]
     Indication: BREAST CANCER
     Dosage: 3 WEEKS ADMINISTRATION, 1 WEEK OF REST
     Route: 048
     Dates: start: 20050712, end: 20050801
  2. MELBIN [Concomitant]
     Route: 048
     Dates: start: 20050617
  3. ACTOS [Concomitant]
     Route: 048
     Dates: start: 20050617
  4. INSULIN [Concomitant]
     Route: 058
  5. DIART [Concomitant]
     Route: 048
     Dates: start: 20050617
  6. JUVELA N [Concomitant]
     Route: 048
     Dates: start: 20050617
  7. PURSENNID [Concomitant]
     Route: 048
     Dates: start: 20050617
  8. LIPITOR [Concomitant]
     Route: 048
  9. LAMISIL [Concomitant]
     Route: 048
     Dates: start: 20050617
  10. ADONA [Concomitant]
     Route: 048
     Dates: start: 20050617
  11. PARIET [Concomitant]
     Route: 048
     Dates: start: 20050629

REACTIONS (1)
  - BLOOD GLUCOSE INCREASED [None]
